FAERS Safety Report 24440647 (Version 1)
Quarter: 2024Q4

REPORT INFORMATION
  Report Type: Spontaneous
  Country: US (occurrence: US)
  Receive Date: 20241016
  Receipt Date: 20241016
  Transmission Date: 20250115
  Serious: No
  Sender: JOHNSON AND JOHNSON
  Company Number: US-JNJFOC-20240965570

PATIENT
  Sex: Male

DRUGS (3)
  1. BALVERSA [Suspect]
     Active Substance: ERDAFITINIB
     Indication: Product used for unknown indication
     Route: 048
  2. BALVERSA [Suspect]
     Active Substance: ERDAFITINIB
     Route: 048
  3. BALVERSA [Suspect]
     Active Substance: ERDAFITINIB
     Dosage: 2 TABLETS BY MOUTH NEVERY DAY
     Route: 048

REACTIONS (2)
  - Off label use [Unknown]
  - Eye disorder [Unknown]
